FAERS Safety Report 8121068-5 (Version None)
Quarter: 2012Q1

REPORT INFORMATION
  Report Type: 
  Country: None (occurrence: None)
  Receive Date: 20120208
  Receipt Date: 20120201
  Transmission Date: 20120608
  Serious: Yes (Hospitalization)
  Sender: FDA-Public Use
  Company Number: NL-B.I. PHARMACEUTICALS,INC./RIDGEFIELD-2010-DE-03130DE

PATIENT
  Sex: Male
  Weight: 88.8 kg

DRUGS (10)
  1. LISINOPRIL [Concomitant]
     Indication: HYPERTENSION
     Dosage: 5 MG
     Route: 048
     Dates: start: 19990101
  2. KEPPRA [Concomitant]
     Indication: EPILEPSY
     Dosage: 3000 MG
     Route: 048
     Dates: start: 20080101
  3. CLOBAZAM [Concomitant]
     Indication: EPILEPSY
     Dosage: 10 MG
     Route: 048
     Dates: start: 20090901
  4. LANOXIN [Concomitant]
     Indication: ATRIAL FIBRILLATION
     Dosage: 0.125 MG
     Route: 048
     Dates: start: 19990101
  5. SELOKEEN [Concomitant]
     Indication: ATRIAL FIBRILLATION
     Dosage: 50 MG
     Route: 048
     Dates: start: 20091101
  6. PANTOPRAZOLE [Concomitant]
     Indication: PROPHYLAXIS
     Dosage: 40 MG
     Route: 048
     Dates: start: 20080101
  7. MOVI COLON [Concomitant]
     Indication: CONSTIPATION
     Dosage: 1 SACHET
     Dates: start: 20091201
  8. DABIGATRAN [Suspect]
     Indication: ATRIAL FIBRILLATION
  9. OXAZEPAM [Concomitant]
     Indication: NERVOUSNESS
     Dosage: 20 MG
     Route: 048
     Dates: start: 20091201
  10. DABIGATRAN [Suspect]
     Indication: CEREBROVASCULAR ACCIDENT PROPHYLAXIS
     Dosage: DOSING BLINDED
     Route: 048
     Dates: start: 20060523, end: 20100605

REACTIONS (1)
  - PULMONARY EMBOLISM [None]
